FAERS Safety Report 13271076 (Version 1)
Quarter: 2017Q1

REPORT INFORMATION
  Report Type: Spontaneous
  Country: US (occurrence: US)
  Receive Date: 20170226
  Receipt Date: 20170226
  Transmission Date: 20170428
  Serious: Yes (Hospitalization)
  Sender: FDA-Public Use
  Company Number: PHEH2017US005476

PATIENT
  Age: 50 Year
  Sex: Male

DRUGS (1)
  1. TASIGNA [Suspect]
     Active Substance: NILOTINIB
     Indication: CHRONIC MYELOID LEUKAEMIA
     Dosage: 400 MG, BID
     Route: 048
     Dates: start: 20150220, end: 20170219

REACTIONS (1)
  - Pancreatitis [Unknown]

NARRATIVE: CASE EVENT DATE: 20150221
